FAERS Safety Report 16210919 (Version 3)
Quarter: 2019Q3

REPORT INFORMATION
  Report Type: Spontaneous
  Country: None (occurrence: GB)
  Receive Date: 20190418
  Receipt Date: 20190711
  Transmission Date: 20191004
  Serious: Yes (Death, Hospitalization)
  Sender: FDA-Public Use
  Company Number: GB-ORION CORPORATION ORION PHARMA-TREX2019-1139

PATIENT
  Age: 80 Year
  Sex: Male

DRUGS (2)
  1. FOLIC ACID. [Concomitant]
     Active Substance: FOLIC ACID
     Route: 065
  2. METHOTREXATE. [Suspect]
     Active Substance: METHOTREXATE
     Indication: PSORIASIS
     Dosage: LOW DOSE; AVERAGE WEEKLY DOSE OF 5MG
     Route: 065

REACTIONS (4)
  - Pulmonary hypertension [Fatal]
  - Pneumonia [Fatal]
  - Idiopathic pulmonary fibrosis [Fatal]
  - Respiratory failure [Fatal]
